FAERS Safety Report 9691438 (Version 2)
Quarter: 2013Q4

REPORT INFORMATION
  Report Type: Spontaneous
  Country: US (occurrence: US)
  Receive Date: 20131115
  Receipt Date: 20131210
  Transmission Date: 20140711
  Serious: Yes (Other)
  Sender: FDA-Public Use
  Company Number: CHPA2013US017040

PATIENT
  Age: 48 Year
  Sex: Female

DRUGS (3)
  1. CONTROL PLP [Suspect]
     Indication: SMOKING CESSATION THERAPY
     Dosage: 21 MG, QD
     Route: 062
     Dates: start: 20131109
  2. CONTROL PLP [Suspect]
     Dosage: 21 MG, QD
     Route: 062
     Dates: start: 20130614, end: 201307
  3. ACETYLSALICYLIC ACID [Suspect]

REACTIONS (2)
  - Gallbladder disorder [Not Recovered/Not Resolved]
  - Drug hypersensitivity [Not Recovered/Not Resolved]
